FAERS Safety Report 6811382-5 (Version None)
Quarter: 2010Q2

REPORT INFORMATION
  Report Type: 
  Country: None (occurrence: None)
  Receive Date: 20100630
  Receipt Date: 20100322
  Transmission Date: 20101027
  Serious: Yes (Other)
  Sender: FDA-Public Use
  Company Number: US-AMGEN-QUU401136

PATIENT
  Sex: Female

DRUGS (2)
  1. EPOGEN [Suspect]
     Indication: RENAL FAILURE CHRONIC
     Route: 065
  2. ARANESP [Concomitant]
     Indication: RENAL FAILURE CHRONIC
     Route: 065

REACTIONS (1)
  - ANAPHYLACTIC REACTION [None]
